FAERS Safety Report 9865979 (Version 2)
Quarter: 2014Q1

REPORT INFORMATION
  Report Type: Spontaneous
  Country: US (occurrence: US)
  Receive Date: 20140203
  Receipt Date: 20140203
  Transmission Date: 20141002
  Serious: No
  Sender: FDA-Public Use
  Company Number: US-ALLERGAN-1314839US

PATIENT
  Age: 68 Year
  Sex: Female

DRUGS (4)
  1. RESTASIS [Suspect]
     Indication: DRY EYE
     Dosage: 2 GTT, BID
     Route: 047
     Dates: start: 20130910, end: 20130922
  2. RESTASIS [Suspect]
     Dosage: ONE VIAL TO EACH EYE
     Dates: start: 20130909, end: 20130923
  3. PREDNISOLONE ACETATE, 1.0% [Concomitant]
     Indication: PRODUCT USED FOR UNKNOWN INDICATION
     Dosage: 2 UNK, UNK
     Route: 047
  4. OTC EYE DROPS NOS [Concomitant]
     Indication: DRY EYE
     Dosage: 4-6 TIMES DAILY

REACTIONS (8)
  - Nervousness [Not Recovered/Not Resolved]
  - Tremor [Not Recovered/Not Resolved]
  - Incorrect dose administered [Unknown]
  - Tremor [Recovered/Resolved]
  - Eye infection [Recovered/Resolved]
  - Wrong technique in drug usage process [Unknown]
  - Eye irritation [Recovered/Resolved]
  - Vision blurred [Recovered/Resolved]
